FAERS Safety Report 16151993 (Version 1)
Quarter: 2019Q2

REPORT INFORMATION
  Report Type: Spontaneous
  Country: BE (occurrence: BE)
  Receive Date: 20190403
  Receipt Date: 20190403
  Transmission Date: 20190711
  Serious: Yes (Death, Hospitalization, Other)
  Sender: FDA-Public Use
  Company Number: BE-ACCORD-116783

PATIENT
  Age: 70 Year
  Sex: Female

DRUGS (2)
  1. NAVELBINE [Suspect]
     Active Substance: VINORELBINE TARTRATE
     Indication: INVASIVE DUCTAL BREAST CARCINOMA
     Dosage: UNK
     Route: 065
  2. MITOMYCIN. [Suspect]
     Active Substance: MITOMYCIN
     Indication: INVASIVE DUCTAL BREAST CARCINOMA
     Dosage: 12 MG, PER SESSION
     Route: 013

REACTIONS (3)
  - Pseudocirrhosis [Recovered/Resolved]
  - Pleural effusion [Unknown]
  - Death [Fatal]
